FAERS Safety Report 18588690 (Version 1)
Quarter: 2020Q4

REPORT INFORMATION
  Report Type: Spontaneous
  Country: JP (occurrence: JP)
  Receive Date: 20201207
  Receipt Date: 20201207
  Transmission Date: 20210114
  Serious: Yes (Hospitalization, Other)
  Sender: FDA-Public Use
  Company Number: JP-TAKEDA-2020TJP026198

PATIENT
  Age: 8 Decade
  Sex: Male

DRUGS (5)
  1. CANDESARTAN CILEXETIL. [Concomitant]
     Active Substance: CANDESARTAN CILEXETIL
     Dosage: UNK
     Route: 065
  2. MONTELUKAST [MONTELUKAST SODIUM] [Concomitant]
     Active Substance: MONTELUKAST SODIUM
     Dosage: UNK
     Route: 065
  3. ZINC. [Concomitant]
     Active Substance: ZINC
     Dosage: UNK
     Route: 065
  4. INISYNC COMBINATION TABLETS [Suspect]
     Active Substance: ALOGLIPTIN BENZOATE\METFORMIN HYDROCHLORIDE
     Indication: TYPE 2 DIABETES MELLITUS
     Dosage: 1 DOSAGE FORM
     Route: 048
     Dates: end: 20200826
  5. RABEPRAZOLE SODIUM. [Concomitant]
     Active Substance: RABEPRAZOLE SODIUM
     Dosage: UNK
     Route: 065

REACTIONS (9)
  - Hepatic function abnormal [Recovered/Resolved]
  - Mobility decreased [Unknown]
  - Peripheral swelling [Not Recovered/Not Resolved]
  - Arthralgia [Recovering/Resolving]
  - Muscular weakness [Unknown]
  - Pyrexia [Recovering/Resolving]
  - C-reactive protein increased [Not Recovered/Not Resolved]
  - Hypophagia [Unknown]
  - Renal impairment [Recovered/Resolved]

NARRATIVE: CASE EVENT DATE: 20200528
